FAERS Safety Report 6014226-7 (Version None)
Quarter: 2008Q4

REPORT INFORMATION
  Report Type: 
  Country: None (occurrence: None)
  Receive Date: 20081219
  Receipt Date: 20080225
  Transmission Date: 20090506
  Serious: No
  Sender: FDA-Public Use
  Company Number: A0711609A

PATIENT
  Age: 50 Year
  Sex: Male

DRUGS (6)
  1. AVODART [Suspect]
     Indication: BENIGN PROSTATIC HYPERPLASIA
     Dosage: 2CAP PER DAY
     Route: 048
     Dates: start: 20071001
  2. CYMBALTA [Concomitant]
  3. LAMICTAL [Concomitant]
  4. GEODON [Concomitant]
  5. CONCERTA [Concomitant]
  6. KLONOPIN [Concomitant]

REACTIONS (2)
  - DRUG INEFFECTIVE [None]
  - THERAPEUTIC RESPONSE UNEXPECTED [None]
